FAERS Safety Report 18767933 (Version 1)
Quarter: 2021Q1

REPORT INFORMATION
  Report Type: Spontaneous
  Country: US (occurrence: US)
  Receive Date: 20210121
  Receipt Date: 20210121
  Transmission Date: 20210419
  Serious: No
  Sender: FDA-Public Use
  Company Number: US-009507513-2012USA010646

PATIENT
  Age: 55 Year
  Sex: Female

DRUGS (2)
  1. AMPHOTERICIN B. [Concomitant]
     Active Substance: AMPHOTERICIN B
     Indication: GASTROINTESTINAL MUCORMYCOSIS
     Dosage: 5 MG/KG DAILY
     Route: 042
  2. NOXAFIL [Suspect]
     Active Substance: POSACONAZOLE
     Indication: GASTROINTESTINAL MUCORMYCOSIS
     Dosage: 300 MG DAILY

REACTIONS (1)
  - Off label use [Unknown]
